FAERS Safety Report 4853629-0 (Version None)
Quarter: 2005Q4

REPORT INFORMATION
  Report Type: 
  Country: None (occurrence: None)
  Receive Date: 20051214
  Receipt Date: 20051208
  Transmission Date: 20060501
  Serious: Yes (Life-Threatening, Hospitalization)
  Sender: FDA-Public Use
  Company Number: 2005GB02396

PATIENT
  Age: 33 Year
  Sex: Male
  Weight: 81.6 kg

DRUGS (3)
  1. QUETIAPINE [Suspect]
     Indication: SCHIZOPHRENIA
     Dosage: 150 MG MANE 450 MG NOCTE
     Route: 048
     Dates: start: 20050620
  2. OLANZAPINE [Interacting]
     Indication: SCHIZOPHRENIA
     Route: 048
     Dates: end: 20050721
  3. FOLIC ACID [Concomitant]
     Route: 048

REACTIONS (2)
  - DIABETIC KETOACIDOSIS [None]
  - DRUG INTERACTION [None]
